FAERS Safety Report 11689209 (Version 1)
Quarter: 2015Q4

REPORT INFORMATION
  Report Type: Spontaneous
  Country: US (occurrence: US)
  Receive Date: 20151102
  Receipt Date: 20151102
  Transmission Date: 20160304
  Serious: No
  Sender: FDA-Public Use
  Company Number: US-BAYER-2015-455846

PATIENT
  Age: 85 Year
  Sex: Female
  Weight: 83.9 kg

DRUGS (6)
  1. FISH OIL [Concomitant]
     Active Substance: FISH OIL
  2. INSULIN [Concomitant]
     Active Substance: INSULIN NOS
  3. OXYBUTYNIN [Concomitant]
     Active Substance: OXYBUTYNIN
  4. MIRALAX [Suspect]
     Active Substance: POLYETHYLENE GLYCOL 3350
     Indication: CONSTIPATION
     Dosage: 0.5 DF, QD
     Route: 048
     Dates: start: 20151020
  5. LISINOPRIL. [Concomitant]
     Active Substance: LISINOPRIL
  6. VITAMIN D3 [Concomitant]
     Active Substance: CHOLECALCIFEROL

REACTIONS (3)
  - Product use issue [None]
  - Product label confusion [None]
  - Product use issue [None]

NARRATIVE: CASE EVENT DATE: 20151020
